FAERS Safety Report 11717102 (Version 3)
Quarter: 2015Q4

REPORT INFORMATION
  Report Type: Spontaneous
  Country: US (occurrence: US)
  Receive Date: 20151104
  Receipt Date: 20151120
  Transmission Date: 20160304
  Serious: No
  Sender: FDA-Public Use
  Company Number: US-ELI_LILLY_AND_COMPANY-US201102004951

PATIENT
  Sex: Female

DRUGS (3)
  1. FORTEO [Suspect]
     Active Substance: TERIPARATIDE
     Dosage: 20 UG, QD
     Route: 065
     Dates: end: 20110614
  2. FORTEO [Suspect]
     Active Substance: TERIPARATIDE
     Dosage: 20 UG, QD
     Dates: start: 201201
  3. FORTEO [Suspect]
     Active Substance: TERIPARATIDE
     Indication: OSTEOPOROSIS
     Dosage: 20 UG, QD
     Route: 065
     Dates: start: 20110119

REACTIONS (9)
  - Pain in extremity [Unknown]
  - Back disorder [Unknown]
  - Nerve compression [Unknown]
  - Muscle spasms [Not Recovered/Not Resolved]
  - Intervertebral disc protrusion [Unknown]
  - Injection site pain [Unknown]
  - Hypoaesthesia [Unknown]
  - Injection site injury [Unknown]
  - Pain [Unknown]
